FAERS Safety Report 20549435 (Version 1)
Quarter: 2022Q1

REPORT INFORMATION
  Report Type: Report from Study
  Country: US (occurrence: US)
  Receive Date: 20220303
  Receipt Date: 20220303
  Transmission Date: 20220423
  Serious: Yes (Other)
  Sender: FDA-Public Use
  Company Number: US-ABBVIE-22K-163-4296510-00

PATIENT
  Sex: Female

DRUGS (1)
  1. RINVOQ [Suspect]
     Active Substance: UPADACITINIB
     Indication: Rheumatoid arthritis
     Route: 048

REACTIONS (6)
  - Pulmonary thrombosis [Recovering/Resolving]
  - Thrombosis [Unknown]
  - Fatigue [Unknown]
  - Cholelithiasis [Unknown]
  - Hypotension [Unknown]
  - Decreased appetite [Unknown]
